FAERS Safety Report 4578367-3 (Version None)
Quarter: 2005Q1

REPORT INFORMATION
  Report Type: 
  Country: None (occurrence: None)
  Receive Date: 20050202
  Receipt Date: 20050202
  Transmission Date: 20050727
  Serious: Yes (Hospitalization)
  Sender: FDA-Public Use
  Company Number: None

PATIENT
  Age: 81 Year
  Sex: Male

DRUGS (4)
  1. EPTIFIBITIDE 75 MG/100 ML [Suspect]
     Dosage: 13CC/O X 18 HRS
  2. CLOPIDOGREL [Concomitant]
  3. HEPARIN [Concomitant]
  4. ASP [Concomitant]

REACTIONS (2)
  - DRUG INTERACTION [None]
  - GASTROINTESTINAL HAEMORRHAGE [None]
